FAERS Safety Report 4772395-0 (Version None)
Quarter: 2005Q3

REPORT INFORMATION
  Report Type: 
  Country: None (occurrence: None)
  Receive Date: 20050919
  Receipt Date: 20050420
  Transmission Date: 20060218
  Serious: No
  Sender: FDA-Public Use
  Company Number: US-BRISTOL-MYERS SQUIBB COMPANY-12941027

PATIENT
  Age: 71 Year
  Sex: Male
  Weight: 109 kg

DRUGS (7)
  1. KENALOG-40 [Suspect]
     Indication: RETINAL VASCULAR OCCLUSION
     Route: 031
     Dates: end: 20040101
  2. TENORMIN [Concomitant]
  3. COZAAR [Concomitant]
  4. BEXTRA [Concomitant]
  5. DYAZIDE [Concomitant]
  6. SYNTHROID [Concomitant]
     Dosage: DOSE VALUE:  ^SMALLEST DOSE^
  7. FLOMAX [Concomitant]

REACTIONS (1)
  - VISION BLURRED [None]
